FAERS Safety Report 4678290-X (Version None)
Quarter: 2005Q2

REPORT INFORMATION
  Report Type: 
  Country: None (occurrence: None)
  Receive Date: 20050601
  Receipt Date: 20050525
  Transmission Date: 20051028
  Serious: Yes (Death)
  Sender: FDA-Public Use
  Company Number: PHBS2005PK07508

PATIENT
  Sex: Female
  Weight: 1 kg

DRUGS (5)
  1. HYDRALLAZINE [Suspect]
     Route: 064
  2. CEFTRIAXONE [Suspect]
     Route: 064
  3. METRONIDAZOLE [Suspect]
     Route: 064
  4. AMLODIPINE [Suspect]
     Route: 064
  5. ALDOMET [Suspect]
     Route: 064

REACTIONS (3)
  - DEATH NEONATAL [None]
  - DRUG EXPOSURE DURING PREGNANCY [None]
  - PREMATURE BABY [None]
